FAERS Safety Report 5291159-5 (Version None)
Quarter: 2007Q2

REPORT INFORMATION
  Report Type: 
  Country: None (occurrence: None)
  Receive Date: 20070409
  Receipt Date: 20070405
  Transmission Date: 20071010
  Serious: Yes (Disabling)
  Sender: FDA-Public Use
  Company Number: 2007UW06822

PATIENT
  Age: 25 Year
  Sex: Male

DRUGS (10)
  1. TOPROL-XL [Suspect]
     Indication: TACHYCARDIA
     Route: 048
     Dates: end: 20070301
  2. TOPROL-XL [Suspect]
     Indication: HYPERTENSION
     Route: 048
     Dates: end: 20070301
  3. TOPROL-XL [Suspect]
     Route: 048
     Dates: start: 20070301
  4. TOPROL-XL [Suspect]
     Route: 048
     Dates: start: 20070301
  5. CRESTOR [Concomitant]
  6. EFFEXOR [Concomitant]
  7. MAXAIR [Concomitant]
  8. PROTONIX [Concomitant]
  9. ALBUTEROL [Concomitant]
  10. PROVIGIL [Concomitant]

REACTIONS (3)
  - ASTHMA [None]
  - IMPAIRED GASTRIC EMPTYING [None]
  - SYNCOPE [None]
